FAERS Safety Report 9968173 (Version 1)
Quarter: 2014Q1

REPORT INFORMATION
  Report Type: Spontaneous
  Country: US (occurrence: US)
  Receive Date: 20140306
  Receipt Date: 20140306
  Transmission Date: 20141002
  Serious: No
  Sender: FDA-Public Use
  Company Number: US-ABBVIE-13P-163-1142443-00

PATIENT
  Age: 29 Year
  Sex: Male
  Weight: 83.99 kg

DRUGS (2)
  1. HUMIRA [Suspect]
     Indication: COLITIS ULCERATIVE
     Dosage: 160 MILLIGRAMS  LOADING DOSE
     Dates: start: 20130820, end: 20130820
  2. HUMIRA [Suspect]

REACTIONS (1)
  - Injection site pain [Recovered/Resolved]
